FAERS Safety Report 13653381 (Version 1)
Quarter: 2017Q2

REPORT INFORMATION
  Report Type: Spontaneous
  Country: US (occurrence: US)
  Receive Date: 20170614
  Receipt Date: 20170614
  Transmission Date: 20170830
  Serious: No
  Sender: FDA-Public Use
  Company Number: US-ROCHE-1398961

PATIENT
  Sex: Male

DRUGS (7)
  1. VITAMIN B COMPLEX [Concomitant]
     Active Substance: CYANOCOBALAMIN\DEXPANTHENOL\NIACINAMIDE\PYRIDOXINE HYDROCHLORIDE\RIBOFLAVIN 5^-PHOSPHATE SODIUM\THIAMINE HYDROCHLORIDE\VITAMIN B COMPLEX
  2. XELODA [Suspect]
     Active Substance: CAPECITABINE
     Indication: RECTOSIGMOID CANCER
     Dosage: EVERY MORNING
     Route: 048
     Dates: start: 20140409
  3. NEURONTIN [Concomitant]
     Active Substance: GABAPENTIN
  4. LYCOPENE [Concomitant]
     Active Substance: LYCOPENE
  5. XELODA [Suspect]
     Active Substance: CAPECITABINE
     Dosage: EVERY EVENING
     Route: 048
     Dates: start: 20140409
  6. PRAVASTATIN. [Concomitant]
     Active Substance: PRAVASTATIN
  7. VITAMIN B6 [Concomitant]
     Active Substance: PYRIDOXINE HYDROCHLORIDE

REACTIONS (1)
  - Rash [Unknown]
